FAERS Safety Report 5417265-X (Version None)
Quarter: 2007Q3

REPORT INFORMATION
  Report Type: 
  Country: None (occurrence: None)
  Receive Date: 20070816
  Receipt Date: 20070806
  Transmission Date: 20080115
  Serious: Yes (Other)
  Sender: FDA-Public Use
  Company Number: US-SHR-US-2007-027386

PATIENT
  Age: 52 Year
  Sex: Female
  Weight: 81.633 kg

DRUGS (1)
  1. BETASERON [Suspect]
     Indication: RELAPSING-REMITTING MULTIPLE SCLEROSIS
     Dosage: 8 MIU, EVERY 2D
     Route: 058
     Dates: start: 19991018, end: 20070507

REACTIONS (11)
  - ABASIA [None]
  - DEPRESSION [None]
  - DYSARTHRIA [None]
  - DYSKINESIA [None]
  - FATIGUE [None]
  - INFLUENZA LIKE ILLNESS [None]
  - MOBILITY DECREASED [None]
  - MUSCLE CONTRACTURE [None]
  - MUSCLE SPASMS [None]
  - PYREXIA [None]
  - TREMOR [None]
